FAERS Safety Report 7885455-2 (Version None)
Quarter: 2011Q4

REPORT INFORMATION
  Report Type: 
  Country: None (occurrence: None)
  Receive Date: 20111102
  Receipt Date: 20111021
  Transmission Date: 20120403
  Serious: No
  Sender: FDA-Public Use
  Company Number: JP-ROCHE-1005739

PATIENT
  Sex: Female
  Weight: 75 kg

DRUGS (8)
  1. PREDNISOLONE [Suspect]
     Indication: RHEUMATOID ARTHRITIS
     Route: 048
     Dates: start: 20100720, end: 20110613
  2. ACTEMRA [Suspect]
     Indication: RHEUMATOID ARTHRITIS
     Route: 041
     Dates: start: 20101116, end: 20101214
  3. ACTEMRA [Suspect]
     Route: 041
     Dates: start: 20110517, end: 20110614
  4. TACROLIMUS [Concomitant]
     Route: 048
     Dates: start: 20110319, end: 20110418
  5. ACTEMRA [Suspect]
     Route: 041
     Dates: start: 20110104, end: 20110419
  6. PREDNISOLONE [Suspect]
     Route: 048
     Dates: start: 20110614
  7. TACROLIMUS [Concomitant]
     Indication: RHEUMATOID ARTHRITIS
     Route: 048
     Dates: start: 20110301, end: 20110318
  8. TACROLIMUS [Concomitant]
     Route: 048
     Dates: start: 20110419, end: 20110712

REACTIONS (1)
  - FAT NECROSIS [None]
